FAERS Safety Report 5030142-1 (Version None)
Quarter: 2006Q2

REPORT INFORMATION
  Report Type: 
  Country: None (occurrence: None)
  Receive Date: 20060614
  Receipt Date: 20060604
  Transmission Date: 20061013
  Serious: Yes (Other)
  Sender: FDA-Public Use
  Company Number: 2006072481

PATIENT
  Age: 90 Year
  Sex: Female
  Weight: 36.2878 kg

DRUGS (6)
  1. LYRICA [Suspect]
     Indication: NEURALGIA
     Dosage: 150 MG (75 MG, 2 IN 1 D)
     Dates: start: 20060101
  2. DICLOFENAC SODIUM [Concomitant]
  3. HYDROCODONE [Concomitant]
  4. ULTRAM [Concomitant]
  5. AMBIEN [Concomitant]
  6. CYMBALTA [Concomitant]

REACTIONS (4)
  - DRY MOUTH [None]
  - OEDEMA MOUTH [None]
  - PAIN [None]
  - THINKING ABNORMAL [None]
